FAERS Safety Report 10094863 (Version 1)
Quarter: 2014Q2

REPORT INFORMATION
  Report Type: Spontaneous
  Country: HR (occurrence: HR)
  Receive Date: 20140422
  Receipt Date: 20140422
  Transmission Date: 20141212
  Serious: Yes (Other)
  Sender: FDA-Public Use
  Company Number: HR-TEVA-476188ISR

PATIENT
  Age: 8 Year
  Sex: Male

DRUGS (1)
  1. QVAR AUTOHALER [Suspect]
     Indication: ASTHMA
     Dosage: 200 MICROGRAM DAILY; PRESSURISED AEROSOLS
     Route: 055
     Dates: start: 20131202, end: 20140119

REACTIONS (2)
  - Chest pain [Recovered/Resolved]
  - Eyelid oedema [Recovered/Resolved]
